FAERS Safety Report 10261076 (Version 1)
Quarter: 2014Q2

REPORT INFORMATION
  Report Type: Spontaneous
  Country: US (occurrence: US)
  Receive Date: 20140626
  Receipt Date: 20140626
  Transmission Date: 20141212
  Serious: No
  Sender: FDA-Public Use
  Company Number: US-SHIRE-US201403202

PATIENT
  Age: 4 Year
  Sex: Female

DRUGS (2)
  1. VYVANSE [Suspect]
     Indication: PRODUCT USED FOR UNKNOWN INDICATION
     Dosage: 20 MG, UNKNOWN
     Route: 048
     Dates: start: 2014
  2. VYVANSE [Suspect]
     Dosage: UNK, 1X/DAY:QD (7 MG MIX BY A COMPOUND PHARMACY)
     Route: 048
     Dates: start: 2014

REACTIONS (3)
  - Drug effect increased [Unknown]
  - Off label use [Not Recovered/Not Resolved]
  - Drug prescribing error [Not Recovered/Not Resolved]
